FAERS Safety Report 12273698 (Version 1)
Quarter: 2016Q2

REPORT INFORMATION
  Report Type: Spontaneous
  Country: CN (occurrence: CN)
  Receive Date: 20160415
  Receipt Date: 20160415
  Transmission Date: 20160815
  Serious: Yes (Hospitalization, Other)
  Sender: FDA-Public Use
  Company Number: CN-SA-2016SA074624

PATIENT
  Age: 60 Year
  Sex: Male
  Weight: 57 kg

DRUGS (1)
  1. OXALIPLATIN. [Suspect]
     Active Substance: OXALIPLATIN
     Indication: METASTASES TO LIVER
     Route: 041
     Dates: start: 20151113, end: 20151113

REACTIONS (4)
  - Blood pressure increased [Recovering/Resolving]
  - Arrhythmia [Recovering/Resolving]
  - Flushing [Recovering/Resolving]
  - Chest discomfort [Recovering/Resolving]

NARRATIVE: CASE EVENT DATE: 20151113
